FAERS Safety Report 10034673 (Version 1)
Quarter: 2014Q1

REPORT INFORMATION
  Report Type: Spontaneous
  Country: JP (occurrence: JP)
  Receive Date: 20140325
  Receipt Date: 20140325
  Transmission Date: 20141002
  Serious: Yes (Other)
  Sender: FDA-Public Use
  Company Number: JP-ASTELLAS-2014JP002581

PATIENT
  Sex: Male
  Weight: 39.8 kg

DRUGS (8)
  1. PROGRAF [Suspect]
     Indication: COLITIS ULCERATIVE
     Dosage: UNK
     Route: 065
     Dates: start: 200907
  2. MESALAZINE [Concomitant]
     Route: 048
  3. LACTOMIN [Concomitant]
     Route: 048
  4. FERROUS SODIUM CITRATE [Concomitant]
     Route: 048
  5. AZATHIOPRINE [Concomitant]
     Route: 048
  6. PREDNISOLONE [Concomitant]
     Route: 048
  7. ADALIMUMAB [Concomitant]
     Dosage: UNK
     Route: 065
     Dates: start: 200905
  8. PREDNISOLONE [Concomitant]
     Dosage: UNK
     Route: 065
     Dates: start: 200906

REACTIONS (2)
  - Drug ineffective [Unknown]
  - Colitis ulcerative [Unknown]
